FAERS Safety Report 5774273-7 (Version None)
Quarter: 2008Q2

REPORT INFORMATION
  Report Type: 
  Country: None (occurrence: None)
  Receive Date: 20080616
  Receipt Date: 20080606
  Transmission Date: 20081010
  Serious: Yes (Other)
  Sender: FDA-Public Use
  Company Number: US-AMGEN-QUU264261

PATIENT
  Sex: Female

DRUGS (10)
  1. ENBREL [Suspect]
     Indication: DRUG USE FOR UNKNOWN INDICATION
     Route: 058
     Dates: start: 20071201, end: 20080101
  2. CELEBREX [Concomitant]
  3. TOPROL-XL [Concomitant]
  4. AMBIEN [Concomitant]
  5. SULFASALAZINE [Concomitant]
  6. AMITRIPTYLINE HCL [Concomitant]
  7. XANAX [Concomitant]
  8. NITROFURANTOIN [Concomitant]
  9. VITAMINS [Concomitant]
  10. UNSPECIFIED CONTRACEPTIVE [Concomitant]

REACTIONS (7)
  - BLOOD POTASSIUM DECREASED [None]
  - BLOOD PRESSURE INCREASED [None]
  - DIARRHOEA [None]
  - HEART RATE INCREASED [None]
  - MALAISE [None]
  - NAUSEA [None]
  - VOMITING [None]
